FAERS Safety Report 21350964 (Version 2)
Quarter: 2022Q4

REPORT INFORMATION
  Report Type: Spontaneous
  Country: JP (occurrence: JP)
  Receive Date: 20220919
  Receipt Date: 20221018
  Transmission Date: 20230112
  Serious: Yes (Death, Other)
  Sender: FDA-Public Use
  Company Number: JP-OTSUKA-2022_045133

PATIENT
  Age: 8 Decade
  Sex: Female

DRUGS (3)
  1. TOLVAPTAN [Suspect]
     Active Substance: TOLVAPTAN
     Indication: Oedema due to cardiac disease
     Dosage: 8 MG
     Route: 041
  2. TOLVAPTAN [Suspect]
     Active Substance: TOLVAPTAN
     Dosage: 8 MG
     Route: 041
  3. TOLVAPTAN [Suspect]
     Active Substance: TOLVAPTAN
     Dosage: 16 MG
     Route: 041

REACTIONS (1)
  - Sepsis [Fatal]

NARRATIVE: CASE EVENT DATE: 20220801
